FAERS Safety Report 9447553 (Version 2)
Quarter: 2013Q3

REPORT INFORMATION
  Report Type: Spontaneous
  Country: BR (occurrence: BR)
  Receive Date: 20130808
  Receipt Date: 20130828
  Transmission Date: 20140515
  Serious: Yes (Other)
  Sender: FDA-Public Use
  Company Number: BR-JNJFOC-20130719082

PATIENT
  Age: 63 Year
  Sex: Female
  Weight: 55 kg

DRUGS (8)
  1. REMICADE [Suspect]
     Indication: RHEUMATOID ARTHRITIS
     Route: 042
     Dates: start: 2013
  2. REMICADE [Suspect]
     Indication: RHEUMATOID ARTHRITIS
     Dosage: THIRD DOSE
     Route: 042
     Dates: start: 20130711
  3. REMICADE [Suspect]
     Indication: RHEUMATOID ARTHRITIS
     Route: 042
     Dates: start: 20130524
  4. REMICADE [Suspect]
     Indication: PSORIASIS
     Route: 042
     Dates: start: 20130524
  5. REMICADE [Suspect]
     Indication: PSORIASIS
     Dosage: THIRD DOSE
     Route: 042
     Dates: start: 20130711
  6. REMICADE [Suspect]
     Indication: PSORIASIS
     Route: 042
     Dates: start: 2013
  7. CRESTOR [Concomitant]
     Route: 065
  8. TAMARINE [Concomitant]
     Route: 065

REACTIONS (7)
  - Wheezing [Recovered/Resolved]
  - Dyspnoea [Recovered/Resolved]
  - Insomnia [Recovering/Resolving]
  - Fatigue [Recovered/Resolved]
  - Depressed mood [Recovered/Resolved]
  - Constipation [Recovering/Resolving]
  - Influenza [Unknown]
